FAERS Safety Report 14471537 (Version 8)
Quarter: 2018Q2

REPORT INFORMATION
  Report Type: Spontaneous
  Country: US (occurrence: US)
  Receive Date: 20180131
  Receipt Date: 20180605
  Transmission Date: 20180711
  Serious: Yes (Hospitalization)
  Sender: FDA-Public Use
  Company Number: US-ACTELION-A-NJ2018-166538

PATIENT
  Age: 69 Year
  Sex: Male

DRUGS (5)
  1. VELETRI [Suspect]
     Active Substance: EPOPROSTENOL
     Indication: PULMONARY ARTERIAL HYPERTENSION
     Dosage: 48 NG/KG, PER MIN
     Route: 042
  2. VELETRI [Suspect]
     Active Substance: EPOPROSTENOL
     Dosage: 51 NG/KG, PER MIN
     Route: 042
  3. VELETRI [Suspect]
     Active Substance: EPOPROSTENOL
     Dosage: 43 NG/KG, PER MIN
     Route: 042
     Dates: start: 20170602
  4. VELETRI [Suspect]
     Active Substance: EPOPROSTENOL
     Dosage: 50 NG/KG, PER MIN
     Route: 042
  5. VELETRI [Suspect]
     Active Substance: EPOPROSTENOL
     Dosage: 46 NG/KG, PER MIN
     Route: 042

REACTIONS (18)
  - Device breakage [Unknown]
  - Fluid overload [Unknown]
  - Flushing [Unknown]
  - Catheterisation cardiac abnormal [Unknown]
  - Pain in jaw [Unknown]
  - Device leakage [Unknown]
  - Catheter management [Unknown]
  - Pulmonary arterial hypertension [Unknown]
  - Hypotension [Unknown]
  - Fatigue [Unknown]
  - Loss of consciousness [Unknown]
  - Dyspnoea [Unknown]
  - Diarrhoea [Unknown]
  - Constipation [Unknown]
  - Swelling [Recovering/Resolving]
  - Nausea [Unknown]
  - Weight increased [Recovering/Resolving]
  - Blood iron decreased [Unknown]

NARRATIVE: CASE EVENT DATE: 20180106
